FAERS Safety Report 12090749 (Version 1)
Quarter: 2016Q1

REPORT INFORMATION
  Report Type: Spontaneous
  Country: BR (occurrence: BR)
  Receive Date: 20160218
  Receipt Date: 20160218
  Transmission Date: 20160526
  Serious: Yes (Hospitalization, Other)
  Sender: FDA-Public Use
  Company Number: BR-ROCHE-1711141

PATIENT
  Sex: Male
  Weight: 1.66 kg

DRUGS (1)
  1. TRASTUZUMAB [Suspect]
     Active Substance: TRASTUZUMAB
     Indication: PRODUCT USED FOR UNKNOWN INDICATION
     Route: 064

REACTIONS (9)
  - Pulmonary hypertension [Unknown]
  - Neonatal respiratory distress syndrome [Unknown]
  - Cardiac hypertrophy [Unknown]
  - Foetal exposure during pregnancy [Unknown]
  - Normochromic normocytic anaemia [Recovered/Resolved]
  - Renal disorder [Recovered/Resolved]
  - Right ventricular failure [Unknown]
  - Jaundice neonatal [Unknown]
  - Apgar score low [Recovered/Resolved]
